FAERS Safety Report 10267077 (Version 3)
Quarter: 2014Q3

REPORT INFORMATION
  Report Type: Spontaneous
  Country: US (occurrence: US)
  Receive Date: 20140630
  Receipt Date: 20140708
  Transmission Date: 20150326
  Serious: Yes (Other)
  Sender: FDA-Public Use
  Company Number: US-RB-067022-14

PATIENT
  Sex: Male

DRUGS (2)
  1. MUCINEX DM [Suspect]
     Active Substance: DEXTROMETHORPHAN HYDROBROMIDE\GUAIFENESIN
     Route: 045
  2. MUCINEX DM [Suspect]
     Active Substance: DEXTROMETHORPHAN HYDROBROMIDE\GUAIFENESIN
     Indication: INTENTIONAL PRODUCT MISUSE
     Route: 042

REACTIONS (4)
  - Incorrect route of drug administration [None]
  - No adverse event [Recovered/Resolved]
  - Intentional product misuse [Recovered/Resolved]
  - Wrong technique in drug usage process [Recovered/Resolved]
